FAERS Safety Report 8772709 (Version 1)
Quarter: 2012Q4

REPORT INFORMATION
  Report Type: 
  Country: DE (occurrence: DE)
  Receive Date: 20120905
  Receipt Date: 20120905
  Transmission Date: 20130627
  Serious: Yes (Other)
  Sender: FDA-Public Use
  Company Number: DE-PFIZER INC-2012215883

PATIENT
  Age: 64 Year
  Sex: Male
  Weight: 88 kg

DRUGS (2)
  1. DOXORUBICIN HCL [Suspect]
     Indication: CHEMOTHERAPY
     Dosage: 100 mg, UNK
     Route: 042
     Dates: start: 20120416, end: 20120416
  2. CYCLOPHOSPHAMIDE [Suspect]
     Indication: CHEMOTHERAPY
     Dosage: 500 mg, UNK
     Route: 042
     Dates: start: 20120416, end: 20120416

REACTIONS (2)
  - Fall [Not Recovered/Not Resolved]
  - Hypotonia [Not Recovered/Not Resolved]
